FAERS Safety Report 7909333-5 (Version None)
Quarter: 2011Q4

REPORT INFORMATION
  Report Type: 
  Country: None (occurrence: None)
  Receive Date: 20111111
  Receipt Date: 20111104
  Transmission Date: 20120403
  Serious: Yes (Hospitalization)
  Sender: FDA-Public Use
  Company Number: FR-UCBSA-042985

PATIENT
  Age: 33 Year
  Sex: Female

DRUGS (7)
  1. URBANYL [Concomitant]
     Dosage: TOTAL DAILY DOSE: 80 MG
     Dates: start: 20101230
  2. KEPPRA [Suspect]
     Dosage: TOTAL DAILY DOSE: 2 G
     Dates: start: 20101226, end: 20110126
  3. THIOPENTAL SODIUM [Suspect]
     Dosage: 4-6 GRAMS DAILY, PROGRESSIVELY DECREASED
     Route: 042
     Dates: start: 20110103, end: 20110119
  4. THIOPENTAL SODIUM [Suspect]
     Dosage: 4-6 G DAILY
     Route: 042
     Dates: start: 20110120, end: 20110209
  5. TOPIRAMATE [Concomitant]
     Indication: MIGRAINE
  6. NEXIUM [Suspect]
     Dosage: TOTAL DIALY DOSE: 40 MG
     Route: 042
     Dates: start: 20101226, end: 20110125
  7. SOLU-MEDROL [Concomitant]
     Dosage: TOTAL DAILY DOSE: 40 MG
     Dates: start: 20110105, end: 20110208

REACTIONS (4)
  - AGRANULOCYTOSIS [None]
  - PSEUDOMONAL SEPSIS [None]
  - STATUS EPILEPTICUS [None]
  - DEPRESSED LEVEL OF CONSCIOUSNESS [None]
